FAERS Safety Report 8523678-X (Version None)
Quarter: 2012Q3

REPORT INFORMATION
  Report Type: 
  Country: None (occurrence: None)
  Receive Date: 20120720
  Receipt Date: 20120717
  Transmission Date: 20120928
  Serious: Yes (Other)
  Sender: FDA-Public Use
  Company Number: US-PFIZER INC-2012172635

PATIENT

DRUGS (4)
  1. GABAPENTIN [Suspect]
     Dosage: 100 MG, 1X/DAY (AT NIGHT)
  2. GABAPENTIN [Suspect]
     Dosage: UNK (100MG 2 FOR THREE DAYS)
  3. GABAPENTIN [Suspect]
     Dosage: UNK (100MG 3 FOR THREE DAYS)
  4. GABAPENTIN [Suspect]
     Dosage: 300 MG

REACTIONS (4)
  - MULTIPLE SCLEROSIS [None]
  - FATIGUE [None]
  - PARAESTHESIA [None]
  - FEELING ABNORMAL [None]
